FAERS Safety Report 5326798-6 (Version None)
Quarter: 2007Q2

REPORT INFORMATION
  Report Type: 
  Country: None (occurrence: None)
  Receive Date: 20070516
  Receipt Date: 20070504
  Transmission Date: 20071010
  Serious: Yes (Life-Threatening)
  Sender: FDA-Public Use
  Company Number: AU-BRISTOL-MYERS SQUIBB COMPANY-13778253

PATIENT
  Age: 75 Year
  Sex: Male

DRUGS (11)
  1. METFORMIN HCL [Suspect]
  2. LISINOPRIL [Suspect]
  3. FUROSEMIDE [Suspect]
  4. DIGOXIN [Concomitant]
  5. WARFARIN SODIUM [Concomitant]
  6. ALLOPURINOL [Concomitant]
  7. ATORVASTATIN CALCIUM [Concomitant]
  8. FGF [Concomitant]
  9. ARANESP [Concomitant]
  10. HYDRALAZINE HCL [Concomitant]
  11. MIXTARD HUMAN 70/30 [Concomitant]

REACTIONS (5)
  - DIARRHOEA [None]
  - LACTIC ACIDOSIS [None]
  - ORAL INTAKE REDUCED [None]
  - RENAL FAILURE ACUTE [None]
  - VOMITING [None]
